FAERS Safety Report 14204314 (Version 1)
Quarter: 2017Q4

REPORT INFORMATION
  Report Type: Spontaneous
  Country: US (occurrence: None)
  Receive Date: 20171118
  Receipt Date: 20171118
  Transmission Date: 20180321
  Serious: No
  Sender: FDA-Public Use
  Company Number: None

PATIENT
  Age: 73 Year
  Sex: Female
  Weight: 63.5 kg

DRUGS (17)
  1. CHEWABLE MULTI VITAMIN [Concomitant]
  2. POTASSIUM [Concomitant]
     Active Substance: POTASSIUM
  3. UBIQUINOL COQ10 [Concomitant]
  4. BONIVA [Suspect]
     Active Substance: IBANDRONATE SODIUM
     Indication: OSTEOPOROSIS
     Route: 048
     Dates: start: 20171101, end: 20171101
  5. VITAMIN A [Concomitant]
     Active Substance: VITAMIN A
  6. VITAMIN D3 [Concomitant]
     Active Substance: CHOLECALCIFEROL
  7. FISH OIL [Concomitant]
     Active Substance: FISH OIL
  8. N-ACETYL-2-CYSTEINE [Concomitant]
  9. PRAVASTATIN. [Concomitant]
     Active Substance: PRAVASTATIN
  10. PROBIOTIC (COLON HEALTH) [Concomitant]
  11. MAGNESIUM MALATE [Concomitant]
  12. VITAMIN B12 [Concomitant]
     Active Substance: CYANOCOBALAMIN
  13. CALCIUM 600 + D [Concomitant]
     Active Substance: CALCIUM\VITAMIN D
  14. METAMUCIL FIBER [Concomitant]
  15. BAYER ASPIRIN [Concomitant]
     Active Substance: ASPIRIN
  16. RED RICVE YEAST [Concomitant]
  17. ALENDRONATE (GENERIC) [Concomitant]

REACTIONS (6)
  - Sleep disorder due to a general medical condition [None]
  - Pain in extremity [None]
  - Myalgia [None]
  - Arthralgia [None]
  - Back pain [None]
  - Chest pain [None]

NARRATIVE: CASE EVENT DATE: 20171101
